FAERS Safety Report 4839792-6 (Version None)
Quarter: 2005Q4

REPORT INFORMATION
  Report Type: 
  Country: None (occurrence: None)
  Receive Date: 20051129
  Receipt Date: 20050909
  Transmission Date: 20060501
  Serious: No
  Sender: FDA-Public Use
  Company Number: 2005-03136

PATIENT
  Age: 60 Year
  Sex: Female

DRUGS (4)
  1. WELLBUTRIN SR [Suspect]
     Indication: DEPRESSION
     Dosage: 300MG IN THE MORNING
     Route: 048
     Dates: start: 20030101
  2. TRAZODONE HCL [Suspect]
     Dosage: 2TAB AT NIGHT
     Route: 048
  3. ULTRAM [Suspect]
     Dosage: 50MG SIX TIMES PER DAY
     Route: 065
     Dates: start: 20030101
  4. ROBAXIN-750 [Suspect]
     Indication: BACK PAIN
     Dosage: 2TAB SIX TIMES PER DAY
     Route: 065
     Dates: start: 20030101

REACTIONS (2)
  - DRUG INEFFECTIVE [None]
  - PRURITUS [None]
